FAERS Safety Report 15619138 (Version 1)
Quarter: 2018Q4

REPORT INFORMATION
  Report Type: Report from Study
  Country: US (occurrence: US)
  Receive Date: 20181114
  Receipt Date: 20181114
  Transmission Date: 20190205
  Serious: Yes (Hospitalization)
  Sender: FDA-Public Use
  Company Number: US-ROCHE-2214770

PATIENT
  Age: 22 Year
  Sex: Female
  Weight: 127.7 kg

DRUGS (2)
  1. OBINUTUZUMAB. [Suspect]
     Active Substance: OBINUTUZUMAB
     Indication: CHRONIC GRAFT VERSUS HOST DISEASE
     Route: 065
  2. PREDNISONE. [Concomitant]
     Active Substance: PREDNISONE
     Route: 065
     Dates: start: 20180802, end: 20181112

REACTIONS (2)
  - Back pain [Unknown]
  - Neutropenia [Unknown]

NARRATIVE: CASE EVENT DATE: 20181111
